FAERS Safety Report 7209013-8 (Version None)
Quarter: 2011Q1

REPORT INFORMATION
  Report Type: 
  Country: None (occurrence: None)
  Receive Date: 20110104
  Receipt Date: 20110103
  Transmission Date: 20110831
  Serious: Yes (Death)
  Sender: FDA-Public Use
  Company Number: US-PFIZER INC-2011000683

PATIENT
  Sex: Female

DRUGS (4)
  1. ACCUPRIL [Suspect]
  2. GLUCOTROL XL [Suspect]
  3. NORVASC [Suspect]
  4. LIPITOR [Suspect]

REACTIONS (1)
  - DEATH [None]
